FAERS Safety Report 5470861-6 (Version None)
Quarter: 2007Q3

REPORT INFORMATION
  Report Type: 
  Country: None (occurrence: None)
  Receive Date: 20070928
  Receipt Date: 20070919
  Transmission Date: 20080115
  Serious: Yes (Other)
  Sender: FDA-Public Use
  Company Number: BR-AVENTIS-200718798GDDC

PATIENT
  Age: 5 Year
  Sex: Female
  Weight: 25 kg

DRUGS (3)
  1. FLAGYL [Suspect]
     Indication: SINUSITIS
     Route: 048
     Dates: start: 20070830, end: 20070919
  2. CLARITHROMYCIN [Concomitant]
     Indication: SINUSITIS
     Route: 048
     Dates: start: 20070830
  3. UNKNOWN DRUG [Concomitant]
     Indication: SINUSITIS
     Dosage: DOSE: UNK
     Route: 048
     Dates: start: 20070830

REACTIONS (3)
  - GAIT DISTURBANCE [None]
  - OFF LABEL USE [None]
  - PAIN IN EXTREMITY [None]
